FAERS Safety Report 4399890-0 (Version None)
Quarter: 2004Q3

REPORT INFORMATION
  Report Type: 
  Country: None (occurrence: None)
  Receive Date: 20040714
  Receipt Date: 20040623
  Transmission Date: 20050211
  Serious: Yes (Life-Threatening, Hospitalization, Disabling, Other)
  Sender: FDA-Public Use
  Company Number: DE_991001633

PATIENT
  Age: 65 Year
  Sex: Female
  Weight: 60 kg

DRUGS (5)
  1. ZYPREXA [Suspect]
     Indication: DELUSION
  2. ZYPREXA [Suspect]
     Indication: DEPRESSION
  3. ANAFRANIL [Concomitant]
  4. OMEPRAZOLE [Concomitant]
  5. ALLOPURINOL [Concomitant]

REACTIONS (12)
  - ANTIPSYCHOTIC DRUG LEVEL ABOVE THERAPEUTIC [None]
  - CARDIOMYOPATHY ACUTE [None]
  - CARDIOMYOPATHY ALCOHOLIC [None]
  - DRUG INTERACTION [None]
  - GENERAL PHYSICAL HEALTH DETERIORATION [None]
  - LEFT VENTRICULAR FAILURE [None]
  - PERICARDIAL EFFUSION [None]
  - PNEUMONIA [None]
  - PULMONARY CONGESTION [None]
  - PULMONARY HYPERTENSION [None]
  - THERAPEUTIC AGENT TOXICITY [None]
  - VENTRICULAR HYPOKINESIA [None]
